FAERS Safety Report 5799999-0 (Version None)
Quarter: 2008Q3

REPORT INFORMATION
  Report Type: 
  Country: None (occurrence: None)
  Receive Date: 20080703
  Receipt Date: 20080630
  Transmission Date: 20090109
  Serious: Yes (Hospitalization)
  Sender: FDA-Public Use
  Company Number: US-ASTRAZENECA-2006UW07006

PATIENT
  Sex: Female
  Weight: 80.9 kg

DRUGS (2)
  1. SEROQUEL [Suspect]
     Indication: DEPRESSION
     Route: 048
     Dates: start: 20030401, end: 20060601
  2. ABILIFY [Concomitant]
     Dates: start: 20061001

REACTIONS (4)
  - DIABETES MELLITUS [None]
  - MENTAL DISORDER [None]
  - SUICIDE ATTEMPT [None]
  - WEIGHT INCREASED [None]
